FAERS Safety Report 15830679 (Version 1)
Quarter: 2019Q1

REPORT INFORMATION
  Report Type: Spontaneous
  Country: US (occurrence: US)
  Receive Date: 20190116
  Receipt Date: 20190116
  Transmission Date: 20190417
  Serious: No
  Sender: FDA-Public Use
  Company Number: US-SHIRE-US201901525

PATIENT
  Sex: Female

DRUGS (1)
  1. XIIDRA [Suspect]
     Active Substance: LIFITEGRAST
     Indication: PRODUCT USED FOR UNKNOWN INDICATION
     Dosage: UNK
     Route: 047
     Dates: start: 20190111

REACTIONS (4)
  - Instillation site irritation [Unknown]
  - Instillation site pain [Unknown]
  - Erythema of eyelid [Unknown]
  - Blepharitis [Unknown]

NARRATIVE: CASE EVENT DATE: 20190111
